FAERS Safety Report 8510112-9 (Version None)
Quarter: 2012Q3

REPORT INFORMATION
  Report Type: 
  Country: None (occurrence: None)
  Receive Date: 20120713
  Receipt Date: 20120703
  Transmission Date: 20120928
  Serious: Yes (Death)
  Sender: FDA-Public Use
  Company Number: CA-FRI-1000037008

PATIENT
  Age: 75 Year
  Sex: Female

DRUGS (3)
  1. ESCITALOPRAM [Suspect]
     Route: 048
  2. LORAZEPAM [Concomitant]
  3. APO-TRIAZIDE [Concomitant]

REACTIONS (6)
  - CHEST PAIN [None]
  - MYOCARDIAL INFARCTION [None]
  - FATIGUE [None]
  - MUSCULOSKELETAL PAIN [None]
  - HYPONATRAEMIA [None]
  - TORSADE DE POINTES [None]
